FAERS Safety Report 9884412 (Version 1)
Quarter: 2014Q1

REPORT INFORMATION
  Report Type: Spontaneous
  Country: IT (occurrence: IT)
  Receive Date: 20140210
  Receipt Date: 20140210
  Transmission Date: 20141002
  Serious: Yes (Other)
  Sender: FDA-Public Use
  Company Number: IT-TEVA-461297ISR

PATIENT
  Age: 33 Year
  Sex: Male

DRUGS (3)
  1. CISPLATINO TEVA ITALIA [Suspect]
     Indication: TESTICULAR EMBRYONAL CARCINOMA
     Dosage: 38 MG/M2 DAILY; CONCENTRATE FOR SOLUTION FOR INTRAVENOUS INFUSION
     Route: 042
     Dates: start: 20131206, end: 20140101
  2. ETOPOSIDE TEVA [Suspect]
     Indication: TESTICULAR EMBRYONAL CARCINOMA
     Dosage: 190 MG/M2 DAILY; CONCENTRATE FOR SOLUTION FOR INTRAVENOUS INFUSION
     Route: 042
     Dates: start: 20131206, end: 20140101
  3. BLEOPRIM [Suspect]
     Indication: TESTICULAR EMBRYONAL CARCINOMA
     Dosage: POWDER FOR SOLUTION FOR INJECTION, 30 IU/M2
     Route: 030
     Dates: start: 20131207, end: 20131229

REACTIONS (3)
  - Arthralgia [Unknown]
  - Pain [Unknown]
  - Asthenia [Unknown]
